FAERS Safety Report 23870351 (Version 4)
Quarter: 2024Q3

REPORT INFORMATION
  Report Type: Report from Study
  Country: CN (occurrence: CN)
  Receive Date: 20240517
  Receipt Date: 20240927
  Transmission Date: 20241017
  Serious: Yes (Hospitalization)
  Sender: ABBVIE
  Company Number: CN-ABBVIE-5497755

PATIENT
  Age: 49 Year
  Sex: Male
  Weight: 80 kg

DRUGS (27)
  1. HUMIRA [Suspect]
     Active Substance: ADALIMUMAB
     Indication: Crohn^s disease
     Dosage: FORM STRENGTH: 40 MILLIGRAM
     Route: 058
     Dates: start: 20230529, end: 20230529
  2. HUMIRA [Suspect]
     Active Substance: ADALIMUMAB
     Dosage: FORM STRENGTH: 40 MILLIGRAM
     Route: 058
     Dates: start: 20230612, end: 20231030
  3. HUMIRA [Suspect]
     Active Substance: ADALIMUMAB
     Dosage: LOADING DOSE?FORM STRENGTH: 40 MILLIGRAM
     Route: 058
     Dates: start: 20230511, end: 20230511
  4. HUMIRA [Suspect]
     Active Substance: ADALIMUMAB
     Dosage: FORM STRENGTH UNITS: 40 MILLIGRAM
     Route: 058
     Dates: start: 20231109, end: 20240512
  5. HUMIRA [Suspect]
     Active Substance: ADALIMUMAB
     Dosage: FORM STRENGTH UNITS: 40 MILLIGRAM
     Route: 058
     Dates: start: 20240513, end: 20240605
  6. PINAVERIUM BROMIDE [Concomitant]
     Active Substance: PINAVERIUM BROMIDE
     Indication: Intestinal obstruction
  7. METHOTREXATE [Concomitant]
     Active Substance: METHOTREXATE
     Indication: Crohn^s disease
     Route: 048
     Dates: start: 20230511
  8. LOXOPROFEN SODIUM [Concomitant]
     Active Substance: LOXOPROFEN SODIUM
     Indication: Degenerative bone disease
     Route: 062
     Dates: start: 20230511, end: 20230520
  9. PHLOROGLUCINOL [Concomitant]
     Active Substance: PHLOROGLUCINOL
     Indication: Intestinal obstruction
  10. RACEANISODAMINE HYDROCHLORIDE [Concomitant]
     Indication: Computerised tomogram intestine
     Dosage: FREQUENCY TEXT: ONCE
     Route: 042
     Dates: start: 20240109, end: 20240109
  11. MONTMORILLONITE [Concomitant]
     Active Substance: MONTMORILLONITE
     Indication: Diarrhoea
  12. Compound Eosinophil Lactobacillus [Concomitant]
     Indication: Intestinal obstruction
  13. SOMATOSTATIN [Concomitant]
     Active Substance: SOMATOSTATIN
     Indication: Intestinal obstruction
  14. LEVOFLOXACIN HYDROCHLORIDE [Concomitant]
     Active Substance: LEVOFLOXACIN HYDROCHLORIDE
     Indication: C-reactive protein increased
  15. LEVOFLOXACIN HYDROCHLORIDE [Concomitant]
     Active Substance: LEVOFLOXACIN HYDROCHLORIDE
     Indication: C-reactive protein increased
  16. FOLIC ACID [Concomitant]
     Active Substance: FOLIC ACID
     Indication: Crohn^s disease
     Dosage: TIME INTERVAL: 0.33333333 DAYS
     Dates: start: 20230511
  17. RABEPRAZOLE SODIUM [Concomitant]
     Active Substance: RABEPRAZOLE SODIUM
     Indication: Intestinal obstruction
  18. BERBERINE [Concomitant]
     Active Substance: BERBERINE
     Indication: Diarrhoea
  19. DROTAVERINE HYDROCHLORIDE [Concomitant]
     Active Substance: DROTAVERINE HYDROCHLORIDE
     Indication: Intestinal obstruction
  20. IMRECOXIB [Concomitant]
     Active Substance: IMRECOXIB
     Indication: Degenerative bone disease
     Dosage: 0.2 GRAM
     Route: 048
     Dates: start: 20230511, end: 20230520
  21. Enteral Nutritional Powder (TP) [Concomitant]
     Indication: Nutritional supplementation
     Route: 048
     Dates: start: 20230511
  22. CALCIUM CHLORIDE\POTASSIUM CHLORIDE\SODIUM CHLORIDE [Concomitant]
     Active Substance: CALCIUM CHLORIDE\POTASSIUM CHLORIDE\SODIUM CHLORIDE
     Indication: Diarrhoea
  23. Mannitol irrigation [Concomitant]
     Indication: Computerised tomogram intestine
     Dosage: 250 MILLILITER?FREQUENCY TEXT: ONCE
     Route: 048
     Dates: start: 20240109, end: 20240109
  24. PANTOPRAZOLE SODIUM [Concomitant]
     Active Substance: PANTOPRAZOLE SODIUM
     Indication: Intestinal obstruction
  25. IOVERSOL [Concomitant]
     Active Substance: IOVERSOL
     Indication: Computerised tomogram intestine
     Dosage: 100 MILLILITER?FREQUENCY TEXT: ONCE
     Route: 042
     Dates: start: 20240109, end: 20240109
  26. OCTREOTIDE ACETATE [Concomitant]
     Active Substance: OCTREOTIDE ACETATE
     Indication: Intestinal obstruction
  27. POTASSIUM CHLORIDE [Concomitant]
     Active Substance: POTASSIUM CHLORIDE
     Indication: Intestinal obstruction

REACTIONS (4)
  - Intestinal obstruction [Recovered/Resolved]
  - C-reactive protein increased [Recovered/Resolved]
  - Diarrhoea [Recovered/Resolved]
  - Diarrhoea [Not Recovered/Not Resolved]

NARRATIVE: CASE EVENT DATE: 20230802
